FAERS Safety Report 7028591-5 (Version None)
Quarter: 2010Q4

REPORT INFORMATION
  Report Type: 
  Country: None (occurrence: None)
  Receive Date: 20101005
  Receipt Date: 20100927
  Transmission Date: 20110411
  Serious: Yes (Life-Threatening, Hospitalization)
  Sender: FDA-Public Use
  Company Number: US-AMGEN-KDC417654

PATIENT
  Age: 37 Year
  Sex: Female
  Weight: 87.2 kg

DRUGS (4)
  1. NEUPOGEN [Suspect]
     Indication: PERIPHERAL BLOOD STEM CELL APHERESIS
     Dates: start: 20100409, end: 20100413
  2. DIOVAN HCT [Concomitant]
  3. PROZAC [Concomitant]
  4. XANAX [Concomitant]

REACTIONS (6)
  - ABDOMINAL DISCOMFORT [None]
  - ASCITES [None]
  - CHEST DISCOMFORT [None]
  - DYSPNOEA [None]
  - SPLENIC HAEMORRHAGE [None]
  - UMBILICAL HERNIA [None]
